FAERS Safety Report 4415831-1 (Version None)
Quarter: 2004Q3

REPORT INFORMATION
  Report Type: 
  Country: None (occurrence: None)
  Receive Date: 20040730
  Receipt Date: 20040714
  Transmission Date: 20050211
  Serious: Yes (Hospitalization, Disabling)
  Sender: FDA-Public Use
  Company Number: DSA_24397_2004

PATIENT
  Age: 59 Year
  Sex: Female

DRUGS (4)
  1. DILTIAZEM HYDROCHLORIDE [Suspect]
     Indication: ANGINA UNSTABLE
     Dosage: 30 MG Q DAY PO
     Route: 048
     Dates: start: 19961007
  2. LOCHOL [Suspect]
     Indication: HYPERCHOLESTEROLAEMIA
     Dosage: 20 MG Q DAY PO
     Route: 048
     Dates: start: 20010406, end: 20040322
  3. MARZULENE S [Suspect]
     Indication: PROPHYLAXIS
     Dosage: 2 MG Q DAY PO
     Route: 048
     Dates: start: 19961007
  4. SELBEX [Suspect]
     Indication: PROPHYLAXIS
     Dosage: 50 MG Q DAY PO
     Route: 048
     Dates: start: 19961007

REACTIONS (6)
  - EYE INFLAMMATION [None]
  - EYE PAIN [None]
  - RETINAL DETACHMENT [None]
  - UVEITIS [None]
  - VITREOUS FLOATERS [None]
  - VITREOUS OPACITIES [None]
